FAERS Safety Report 11692884 (Version 1)
Quarter: 2015Q4

REPORT INFORMATION
  Report Type: Spontaneous
  Country: US (occurrence: None)
  Receive Date: 20151102
  Receipt Date: 20151102
  Transmission Date: 20160304
  Serious: Yes (Hospitalization)
  Sender: FDA-Public Use
  Company Number: None

PATIENT
  Age: 17 Year
  Sex: Female
  Weight: 95.5 kg

DRUGS (6)
  1. METHOTREXATE [Suspect]
     Active Substance: METHOTREXATE
     Dates: end: 20151014
  2. VINCRISTINE SULFATE. [Suspect]
     Active Substance: VINCRISTINE SULFATE
     Dates: start: 20151021
  3. PREDNISONE. [Suspect]
     Active Substance: PREDNISONE
     Dates: end: 20151027
  4. ONCASPAR [Suspect]
     Active Substance: PEGASPARGASE
     Dates: end: 20151010
  5. DAUNORUBICIN [Suspect]
     Active Substance: DAUNORUBICIN
     Dates: end: 20151021
  6. CYTARABINE. [Suspect]
     Active Substance: CYTARABINE
     Dates: end: 20151005

REACTIONS (6)
  - Escherichia test positive [None]
  - Hypotension [None]
  - Emotional distress [None]
  - Abdominal pain [None]
  - Neutropenic colitis [None]
  - Tachycardia [None]

NARRATIVE: CASE EVENT DATE: 20151028
